APPROVED DRUG PRODUCT: LEUCOVORIN CALCIUM
Active Ingredient: LEUCOVORIN CALCIUM
Strength: EQ 10MG BASE
Dosage Form/Route: TABLET;ORAL
Application: A074544 | Product #003 | TE Code: AB
Applicant: EPIC PHARMA LLC
Approved: May 19, 2021 | RLD: No | RS: No | Type: RX